FAERS Safety Report 10248514 (Version 1)
Quarter: 2014Q2

REPORT INFORMATION
  Report Type: Spontaneous
  Country: US (occurrence: None)
  Receive Date: 20140617
  Receipt Date: 20140617
  Transmission Date: 20141212
  Serious: Yes (Other)
  Sender: FDA-Public Use
  Company Number: None

PATIENT
  Age: 70 Year
  Sex: Female

DRUGS (10)
  1. PROLIA [Suspect]
     Indication: OSTEOPOROSIS
     Dosage: 1 ML Q 6 MONTHS SUBCUTANEOUS
     Route: 058
     Dates: start: 20140521, end: 20140521
  2. TRAMADOL [Concomitant]
  3. SIMVASTATIN [Concomitant]
  4. LORAZEPAM [Concomitant]
  5. HYDROCODONE [Concomitant]
  6. AMLODIPINE [Concomitant]
  7. FLUTICASONE [Concomitant]
  8. ESTRACE [Concomitant]
  9. ASPIRIN [Concomitant]
  10. CIMETIDINE [Concomitant]

REACTIONS (4)
  - Headache [None]
  - Migraine [None]
  - Pain in jaw [None]
  - Back pain [None]
